FAERS Safety Report 10583749 (Version 1)
Quarter: 2014Q4

REPORT INFORMATION
  Report Type: Spontaneous
  Country: US (occurrence: None)
  Receive Date: 20141112
  Receipt Date: 20141112
  Transmission Date: 20150529
  Serious: Yes (Other)
  Sender: FDA-Public Use
  Company Number: FK201404874

PATIENT

DRUGS (1)
  1. PROTAMINE SULFATE. [Suspect]
     Active Substance: PROTAMINE SULFATE
     Indication: CARDIAC OPERATION
     Dosage: UNKNOWN, UNKNOWN, INTRAVENOUS (NOT OTHERWISE SPECIFIED)?
     Route: 042

REACTIONS (3)
  - Intracardiac thrombus [None]
  - Drug effect increased [None]
  - Cerebrovascular accident [None]
